FAERS Safety Report 14619658 (Version 2)
Quarter: 2018Q2

REPORT INFORMATION
  Report Type: Spontaneous
  Country: GB (occurrence: GB)
  Receive Date: 20180309
  Receipt Date: 20180403
  Transmission Date: 20180711
  Serious: Yes (Hospitalization, Other)
  Sender: FDA-Public Use
  Company Number: GB-MYLANLABS-2018M1015154

PATIENT
  Age: 39 Year
  Sex: Female

DRUGS (1)
  1. CLOZARIL [Suspect]
     Active Substance: CLOZAPINE
     Indication: SCHIZOPHRENIA
     Dosage: UNK
     Route: 048
     Dates: start: 20180301, end: 20180303

REACTIONS (8)
  - Viral infection [Unknown]
  - Blood pressure increased [Unknown]
  - Refusal of examination [Unknown]
  - Gammopathy [Unknown]
  - Urinary incontinence [Unknown]
  - Condition aggravated [Unknown]
  - Renal vasculitis [Unknown]
  - Haemoglobin decreased [Unknown]

NARRATIVE: CASE EVENT DATE: 201803
